FAERS Safety Report 6309496-1 (Version None)
Quarter: 2009Q3

REPORT INFORMATION
  Report Type: 
  Country: None (occurrence: None)
  Receive Date: 20090814
  Receipt Date: 20090512
  Transmission Date: 20100115
  Serious: No
  Sender: FDA-Public Use
  Company Number: US-BAYER-200920718NA

PATIENT
  Age: 64 Year
  Sex: Female

DRUGS (5)
  1. CLIMARA [Suspect]
     Indication: HOT FLUSH
     Dosage: CONTINUOUS DELIVERY FOR ONCE WEEKLY APPLICATION
     Route: 062
  2. FIORICET [Concomitant]
     Indication: MIGRAINE
  3. DETROL LA [Concomitant]
     Indication: BLADDER DISORDER
  4. ALLEGRA [Concomitant]
     Indication: MULTIPLE ALLERGIES
     Route: 048
  5. VISTARIL [Concomitant]
     Indication: NAUSEA
     Route: 048

REACTIONS (1)
  - HOT FLUSH [None]
